FAERS Safety Report 14249712 (Version 1)
Quarter: 2017Q4

REPORT INFORMATION
  Report Type: Spontaneous
  Country: US (occurrence: US)
  Receive Date: 20171204
  Receipt Date: 20171204
  Transmission Date: 20180321
  Serious: Yes (Disabling)
  Sender: FDA-Public Use
  Company Number: None

PATIENT
  Age: 43 Year
  Sex: Female
  Weight: 66.6 kg

DRUGS (8)
  1. HYDROCORTISONE. [Suspect]
     Active Substance: HYDROCORTISONE
     Indication: ECZEMA
     Dosage: ?          QUANTITY:3 OUNCE(S);?
     Route: 061
     Dates: start: 20150824, end: 20160715
  2. TRIAMCINOLONE ACETONIDE CREAM, USP 0.1% [Suspect]
     Active Substance: TRIAMCINOLONE ACETONIDE
     Indication: ECZEMA
     Dosage: ?          QUANTITY:2 OUNCE(S);?
     Route: 061
     Dates: start: 20151215, end: 20160715
  3. VITAMIN D [Concomitant]
     Active Substance: CHOLECALCIFEROL
  4. VITAMIN B12 [Concomitant]
     Active Substance: CYANOCOBALAMIN
  5. MULTI VITAMIN [Concomitant]
     Active Substance: VITAMINS
  6. ADRENAL SUPPORT SUPPLEMENTS [Concomitant]
  7. OMEGA 3 [Concomitant]
     Active Substance: OMEGA-3 FATTY ACIDS
  8. VITAMIN C [Concomitant]
     Active Substance: ASCORBIC ACID

REACTIONS (32)
  - Drug ineffective [None]
  - Asthenia [None]
  - Skin exfoliation [None]
  - Neuralgia [None]
  - Chills [None]
  - Photophobia [None]
  - Eczema [None]
  - Decreased appetite [None]
  - Dry skin [None]
  - Burns second degree [None]
  - Menstrual disorder [None]
  - Scab [None]
  - Pruritus [None]
  - Myalgia [None]
  - Rash macular [None]
  - Skin burning sensation [None]
  - Erythema [None]
  - Adrenal insufficiency [None]
  - Weight decreased [None]
  - Increased appetite [None]
  - Nasopharyngitis [None]
  - Insomnia [None]
  - Skin wrinkling [None]
  - Hair growth abnormal [None]
  - Tooth loss [None]
  - Oedema [None]
  - Vision blurred [None]
  - Muscle spasms [None]
  - Skin odour abnormal [None]
  - Rash erythematous [None]
  - Alopecia [None]
  - Hyperhidrosis [None]

NARRATIVE: CASE EVENT DATE: 20160715
